FAERS Safety Report 8866443 (Version 2)
Quarter: 2012Q4

REPORT INFORMATION
  Report Type: Report from Study
  Country: US (occurrence: US)
  Receive Date: 20121025
  Receipt Date: 20121121
  Transmission Date: 20130627
  Serious: Yes (Other)
  Sender: FDA-Public Use
  Company Number: US-US-EMD SERONO, INC.-7169007

PATIENT
  Sex: Female

DRUGS (5)
  1. REBIF [Suspect]
     Indication: PRODUCT USED FOR UNKNOWN INDICATION
     Dates: start: 20041018
  2. REBIF [Suspect]
  3. REBIF [Suspect]
     Route: 058
  4. REBIF [Suspect]
  5. REBIF [Suspect]

REACTIONS (5)
  - Tooth abscess [Unknown]
  - Tooth erosion [Unknown]
  - Tooth loss [Unknown]
  - Vomiting [Unknown]
  - Multiple sclerosis relapse [Recovering/Resolving]
